FAERS Safety Report 7098813-3 (Version None)
Quarter: 2010Q4

REPORT INFORMATION
  Report Type: 
  Country: None (occurrence: None)
  Receive Date: 20101112
  Receipt Date: 20101105
  Transmission Date: 20110411
  Serious: Yes (Other)
  Sender: FDA-Public Use
  Company Number: CA-PURDUE-CAN-2010-0001589

PATIENT
  Age: 72 Year
  Sex: Female

DRUGS (6)
  1. BUTRANS [Suspect]
     Indication: PAIN
     Dosage: 1 PATCH, WEEKLY
     Route: 062
     Dates: start: 20100901
  2. QUETIAPINE [Concomitant]
     Indication: PRODUCT USED FOR UNKNOWN INDICATION
     Dosage: 100-200 MG, HS
     Route: 048
     Dates: start: 20080101
  3. CLONAZEPAM [Concomitant]
     Indication: PRODUCT USED FOR UNKNOWN INDICATION
     Dosage: 2 MG, BID
     Route: 048
     Dates: start: 20020101
  4. PROPRANOLOL [Concomitant]
     Indication: PRODUCT USED FOR UNKNOWN INDICATION
     Dosage: 40 MG, BID
     Route: 048
     Dates: start: 20020101
  5. SERTRALINE HYDROCHLORIDE [Concomitant]
     Indication: PRODUCT USED FOR UNKNOWN INDICATION
     Dosage: 75 MG, HS
     Route: 048
     Dates: start: 20100301
  6. OXYCET [Concomitant]
     Indication: PAIN
     Dosage: UNK
     Route: 048
     Dates: start: 20020101

REACTIONS (1)
  - APPLICATION SITE EXFOLIATION [None]
